FAERS Safety Report 6966346-8 (Version None)
Quarter: 2010Q3

REPORT INFORMATION
  Report Type: 
  Country: None (occurrence: None)
  Receive Date: 20100903
  Receipt Date: 20100901
  Transmission Date: 20110219
  Serious: Yes (Hospitalization)
  Sender: FDA-Public Use
  Company Number: FR-ROCHE-707806

PATIENT
  Sex: Female
  Weight: 69 kg

DRUGS (12)
  1. BONIVA [Suspect]
     Indication: OSTEOPOROSIS
     Route: 042
     Dates: start: 20100527
  2. TAREG [Concomitant]
     Route: 048
  3. SIMVASTATIN [Concomitant]
     Route: 048
  4. BETASERC [Concomitant]
     Indication: VERTIGO
     Route: 048
  5. ACETAMINOPHEN W/ PROPOXYPHENE HCL [Concomitant]
     Indication: PAIN
     Route: 048
  6. EFFERALGAN [Concomitant]
     Indication: PAIN
     Dosage: DRUG NAME: EFFERALGAN 500
     Route: 048
  7. MEBEVERINE [Concomitant]
     Dosage: DRUG NAME: MEBEVERINE 200
     Route: 048
  8. TROXERUTINE [Concomitant]
     Route: 048
  9. OMEPRAZOLE [Concomitant]
     Indication: GASTRIC DISORDER
     Dosage: DRUG NAME: OMETRAZOLE 20
     Route: 048
  10. KESTIN [Concomitant]
     Dosage: DRUG NAME: KESTIN 10
     Route: 048
  11. CALTRATE + VIT D3 [Concomitant]
     Dosage: DRUG NAME: CALTRATE D3
     Route: 048
  12. EQUANIL [Concomitant]
     Dosage: DRUG NAME: EQUANIL 250
     Route: 048

REACTIONS (5)
  - ARTHRALGIA [None]
  - BONE PAIN [None]
  - GAIT DISTURBANCE [None]
  - MOVEMENT DISORDER [None]
  - PAINFUL RESPIRATION [None]
